FAERS Safety Report 14055314 (Version 1)
Quarter: 2017Q4

REPORT INFORMATION
  Report Type: Spontaneous
  Country: AT (occurrence: AT)
  Receive Date: 20171006
  Receipt Date: 20171006
  Transmission Date: 20180321
  Serious: Yes (Other)
  Sender: FDA-Public Use
  Company Number: AT-BRISTOL-MYERS SQUIBB COMPANY-BMS-2017-082544

PATIENT
  Age: 71 Year
  Sex: Female

DRUGS (2)
  1. ELIQUIS [Suspect]
     Active Substance: APIXABAN
     Indication: CEREBROVASCULAR ACCIDENT PROPHYLAXIS
     Dosage: UNK
     Route: 065
  2. IROCOPHAN [Interacting]
     Active Substance: ACETAMINOPHEN\CAFFEINE\CARBASPIRIN CALCIUM
     Indication: MIGRAINE
     Dosage: 5 TAB, PRN
     Route: 065

REACTIONS (3)
  - Haemorrhage [Recovered/Resolved]
  - Drug interaction [Unknown]
  - Anaemia [Recovered/Resolved]
